FAERS Safety Report 8963983 (Version 1)
Quarter: 2012Q4

REPORT INFORMATION
  Report Type: 
  Country: JP (occurrence: JP)
  Receive Date: 20121213
  Receipt Date: 20121213
  Transmission Date: 20130627
  Serious: Yes (Death)
  Sender: FDA-Public Use
  Company Number: JP-B.I. PHARMACEUTICALS,INC./RIDGEFIELD-2012-BI-03068NB

PATIENT
  Age: 74 Year
  Sex: Male

DRUGS (7)
  1. MIRAPEX [Suspect]
     Indication: PARKINSON^S DISEASE
     Dosage: 3 mg
     Route: 048
     Dates: start: 20120831
  2. NEODOPASTON [Concomitant]
     Dosage: 450 mg
     Route: 048
  3. FP-OD [Concomitant]
     Dosage: 2.5 mg
     Route: 048
  4. TRERIEF [Concomitant]
     Dosage: 25 mg
     Route: 048
  5. DOMPERIDONE [Concomitant]
     Indication: GASTRITIS
     Route: 065
  6. REBAMIPIDE [Concomitant]
     Indication: GASTRITIS
     Route: 065
  7. CALFINA [Concomitant]
     Route: 065

REACTIONS (1)
  - Death [Fatal]
